FAERS Safety Report 5506669-2 (Version None)
Quarter: 2007Q4

REPORT INFORMATION
  Report Type: 
  Country: None (occurrence: None)
  Receive Date: 20071101
  Receipt Date: 20071012
  Transmission Date: 20080405
  Serious: Yes (Hospitalization)
  Sender: FDA-Public Use
  Company Number: 071004429

PATIENT
  Age: 28 Month
  Sex: Female

DRUGS (2)
  1. TYLENOL (CAPLET) [Suspect]
     Indication: PYREXIA
     Dates: start: 20070301
  2. DELSYM [Suspect]
     Indication: COUGH
     Dosage: 0.5TSP, Q12HR, ORAL
     Route: 048
     Dates: start: 20070226, end: 20070305

REACTIONS (1)
  - ANAEMIA HAEMOLYTIC AUTOIMMUNE [None]
